FAERS Safety Report 7394375-1 (Version None)
Quarter: 2011Q2

REPORT INFORMATION
  Report Type: 
  Country: None (occurrence: None)
  Receive Date: 20110405
  Receipt Date: 20110323
  Transmission Date: 20111010
  Serious: Yes (Hospitalization, Other)
  Sender: FDA-Public Use
  Company Number: US-ELI_LILLY_AND_COMPANY-US201101007397

PATIENT
  Age: 85 Year
  Sex: Female

DRUGS (2)
  1. FORTEO [Suspect]
     Indication: OSTEOPOROSIS
     Dosage: UNK, DAILY (1/D)
  2. FORTEO [Suspect]
     Dosage: UNK, QD

REACTIONS (4)
  - BLOOD DISORDER [None]
  - PLASMA VISCOSITY DECREASED [None]
  - HIP FRACTURE [None]
  - FALL [None]
